FAERS Safety Report 6802090-5 (Version None)
Quarter: 2010Q2

REPORT INFORMATION
  Report Type: 
  Country: None (occurrence: None)
  Receive Date: 20100629
  Receipt Date: 20071031
  Transmission Date: 20101027
  Serious: No
  Sender: FDA-Public Use
  Company Number: US-PFIZER INC-2007065216

PATIENT
  Sex: Male
  Weight: 68 kg

DRUGS (5)
  1. VIAGRA [Suspect]
     Indication: ERECTILE DYSFUNCTION
  2. ALLEGRA [Concomitant]
     Indication: MULTIPLE ALLERGIES
  3. FLONASE [Concomitant]
     Indication: MULTIPLE ALLERGIES
  4. PROSCAR [Concomitant]
     Indication: PROSTATOMEGALY
  5. CARDURA [Concomitant]
     Indication: PROSTATOMEGALY

REACTIONS (2)
  - BREAST ENLARGEMENT [None]
  - DRUG INEFFECTIVE [None]
